FAERS Safety Report 19740225 (Version 1)
Quarter: 2021Q3

REPORT INFORMATION
  Report Type: Spontaneous
  Country: ES (occurrence: ES)
  Receive Date: 20210824
  Receipt Date: 20210824
  Transmission Date: 20211014
  Serious: Yes (Other)
  Sender: FDA-Public Use
  Company Number: ES-TEVA-2021-ES-1943723

PATIENT
  Age: 58 Year
  Sex: Female

DRUGS (1)
  1. PREGABALINA 150 MG 56 CAPSULAS [Suspect]
     Active Substance: PREGABALIN
     Indication: HERPES ZOSTER
     Route: 065
     Dates: start: 20210625

REACTIONS (2)
  - Depressed level of consciousness [Unknown]
  - Dizziness [Unknown]

NARRATIVE: CASE EVENT DATE: 20210626
